FAERS Safety Report 16919945 (Version 5)
Quarter: 2019Q4

REPORT INFORMATION
  Report Type: Spontaneous
  Country: US (occurrence: US)
  Receive Date: 20191015
  Receipt Date: 20191210
  Transmission Date: 20200122
  Serious: No
  Sender: FDA-Public Use
  Company Number: US-ACTELION-A-US2019-196925

PATIENT
  Age: 83 Year
  Sex: Female
  Weight: 73.47 kg

DRUGS (4)
  1. UPTRAVI [Suspect]
     Active Substance: SELEXIPAG
     Indication: PULMONARY ARTERIAL HYPERTENSION
     Dosage: 100 MCG, QD
     Route: 048
     Dates: start: 20191017, end: 20191118
  2. UPTRAVI [Suspect]
     Active Substance: SELEXIPAG
     Dosage: 200 MCG, BID
     Route: 048
     Dates: start: 20191004
  3. SILDENAFIL CITRATE. [Concomitant]
     Active Substance: SILDENAFIL CITRATE
  4. DILTIAZEM. [Concomitant]
     Active Substance: DILTIAZEM

REACTIONS (9)
  - Dizziness [Unknown]
  - Adverse event [Unknown]
  - Atrial fibrillation [Unknown]
  - Pain [Unknown]
  - Migraine [Unknown]
  - Hypomagnesaemia [Unknown]
  - Myalgia [Unknown]
  - Muscle spasms [Unknown]
  - Loss of personal independence in daily activities [Unknown]

NARRATIVE: CASE EVENT DATE: 20191004
